FAERS Safety Report 23636020 (Version 1)
Quarter: 2024Q1

REPORT INFORMATION
  Report Type: Spontaneous
  Country: US (occurrence: US)
  Receive Date: 20240315
  Receipt Date: 20240315
  Transmission Date: 20240409
  Serious: No
  Sender: FDA-Public Use
  Company Number: US-LFBP-2023000037

PATIENT
  Age: 2 Year
  Sex: Female
  Weight: 16.4 kg

DRUGS (1)
  1. SEVENFACT [Suspect]
     Active Substance: COAGULATION FACTOR VIIA RECOMBINANT HUMAN-JNCW
     Indication: Factor VII deficiency
     Route: 065
     Dates: start: 20211229

REACTIONS (4)
  - International normalised ratio increased [Unknown]
  - Factor VII inhibition [Unknown]
  - Off label use [Unknown]
  - Off label use [Unknown]

NARRATIVE: CASE EVENT DATE: 20221201
